FAERS Safety Report 4492924-4 (Version None)
Quarter: 2004Q4

REPORT INFORMATION
  Report Type: 
  Country: None (occurrence: None)
  Receive Date: 20041102
  Receipt Date: 20041015
  Transmission Date: 20050328
  Serious: Yes (Disabling)
  Sender: FDA-Public Use
  Company Number: A01200405191

PATIENT
  Age: 75 Year
  Sex: Male

DRUGS (3)
  1. ELIGARD - (LEUPROLIDE ACETATE) - SUSPENSION - 2.5 MG [Suspect]
     Indication: PROSTATE CANCER
  2. PROSCAR [Suspect]
  3. CASODEX [Suspect]

REACTIONS (4)
  - BONE DISORDER [None]
  - DYSGRAPHIA [None]
  - HYPOKINESIA [None]
  - MONOPARESIS [None]
